FAERS Safety Report 18513997 (Version 2)
Quarter: 2020Q4

REPORT INFORMATION
  Report Type: Spontaneous
  Country: JP (occurrence: JP)
  Receive Date: 20201117
  Receipt Date: 20201216
  Transmission Date: 20210114
  Serious: Yes (Other)
  Sender: FDA-Public Use
  Company Number: JP-009507513-2011JPN001563J

PATIENT
  Age: 90 Year
  Sex: Female
  Weight: 58 kg

DRUGS (9)
  1. BELSOMRA [Suspect]
     Active Substance: SUVOREXANT
     Indication: INSOMNIA
     Dosage: 15 MILLIGRAM, QD
     Route: 048
     Dates: start: 20200630, end: 20200712
  2. GRAMALIL [Concomitant]
     Active Substance: TIAPRIDE HYDROCHLORIDE
     Dosage: 25 MILLIGRAM, QD(AFTER SUPPER)
     Route: 048
  3. THYRADIN-S [Concomitant]
     Active Substance: LEVOTHYROXINE
     Dosage: 25 MICROGRAM, QD(AFTER BREAKFAST)
     Route: 048
  4. DAI-KENCHU-TO [Concomitant]
     Active Substance: MALTOSE
     Dosage: 2 INTERNATIONAL UNIT, TID(AFTER MEALS)
     Route: 048
     Dates: start: 20200710
  5. PURSENNID (SENNOSIDES) [Concomitant]
     Active Substance: SENNOSIDES A AND B
     Dosage: 12 MILLIGRAM, QD(AFTER SUPPER)
     Route: 048
  6. LECICARBON [Concomitant]
     Active Substance: SODIUM BICARBONATE\SODIUM PHOSPHATE, MONOBASIC
     Indication: CONSTIPATION
     Dosage: UNK
     Route: 065
     Dates: start: 20200705
  7. OPALMON [Concomitant]
     Active Substance: LIMAPROST
     Dosage: 5 MICROGRAM, TID(AFTER MEALS)
     Route: 048
  8. REBAMIPIDE [Concomitant]
     Active Substance: REBAMIPIDE
     Dosage: 100 MILLIGRAM, TID(AFTER MEALS)
     Route: 048
  9. MECOBALAMIN [Concomitant]
     Active Substance: METHYLCOBALAMIN
     Dosage: 500 MICROGRAM, TID(AFTER MEALS)
     Route: 048

REACTIONS (2)
  - Alanine aminotransferase increased [Recovering/Resolving]
  - Aspartate aminotransferase increased [Recovering/Resolving]

NARRATIVE: CASE EVENT DATE: 20200710
